FAERS Safety Report 5440941-X (Version None)
Quarter: 2007Q3

REPORT INFORMATION
  Report Type: 
  Country: None (occurrence: None)
  Receive Date: 20070831
  Receipt Date: 20070801
  Transmission Date: 20080115
  Serious: Yes (Other)
  Sender: FDA-Public Use
  Company Number: US-PFIZER INC-2006143515

PATIENT
  Sex: Female

DRUGS (2)
  1. BEXTRA [Suspect]
     Indication: MUSCLE SPASMS
     Route: 048
  2. BEXTRA [Suspect]
     Indication: PAIN

REACTIONS (3)
  - DRUG HYPERSENSITIVITY [None]
  - HYPERTENSION [None]
  - STEVENS-JOHNSON SYNDROME [None]
